FAERS Safety Report 22149164 (Version 1)
Quarter: 2023Q1

REPORT INFORMATION
  Report Type: Spontaneous
  Country: NL (occurrence: NL)
  Receive Date: 20230329
  Receipt Date: 20230329
  Transmission Date: 20230418
  Serious: Yes (Other)
  Sender: FDA-Public Use
  Company Number: NL-LRB-00870373

PATIENT
  Sex: Male

DRUGS (3)
  1. DICLOFENAC SODIUM [Suspect]
     Active Substance: DICLOFENAC SODIUM
     Indication: Pain
     Dosage: 50 MILLIGRAM (1-3D1T)
     Route: 065
     Dates: start: 20120515, end: 20230216
  2. ACETYLCYSTEINE [Suspect]
     Active Substance: ACETYLCYSTEINE
     Indication: Cough
     Dosage: 1 DOSAGE FORM, ONCE A DAY, 1X PER DAG 1 TABLET
     Route: 065
     Dates: start: 20230201, end: 20230216
  3. RAMIPRIL [Suspect]
     Active Substance: RAMIPRIL
     Indication: Hypertension
     Dosage: 2.5 MILLIGRAM, ONCE A DAY, 1X PER DAG 1 STUK
     Route: 065
     Dates: start: 20140914

REACTIONS (1)
  - Angioedema [Recovered/Resolved]
